FAERS Safety Report 12994197 (Version 2)
Quarter: 2017Q1

REPORT INFORMATION
  Report Type: Spontaneous
  Country: JP (occurrence: JP)
  Receive Date: 20161202
  Receipt Date: 20170203
  Transmission Date: 20170428
  Serious: Yes (Other)
  Sender: FDA-Public Use
  Company Number: JP-CELGENEUS-JPN-2016116010

PATIENT
  Age: 65 Year
  Sex: Male

DRUGS (7)
  1. REVLIMID [Suspect]
     Active Substance: LENALIDOMIDE
     Dosage: 25MG
     Route: 048
     Dates: start: 20161019, end: 20161211
  2. DEXAMETHASONE IV [Suspect]
     Active Substance: DEXAMETHASONE
     Dosage: 20MG/SQ.METER
     Route: 041
     Dates: start: 20161019, end: 20161102
  3. VELCADE [Concomitant]
     Active Substance: BORTEZOMIB
     Indication: PLASMA CELL MYELOMA
     Route: 065
     Dates: start: 20151006, end: 20160312
  4. DEXAMETHASONE IV [Suspect]
     Active Substance: DEXAMETHASONE
     Route: 065
     Dates: start: 20160823, end: 20161015
  5. KYPROLIS [Suspect]
     Active Substance: CARFILZOMIB
     Indication: PLASMA CELL MYELOMA
     Dosage: 27MG/SQ.METER
     Route: 041
     Dates: start: 20161019, end: 20161212
  6. REVLIMID [Suspect]
     Active Substance: LENALIDOMIDE
     Indication: PLASMA CELL MYELOMA
     Route: 048
     Dates: start: 20151027, end: 20160312
  7. DEXAMETHASONE IV [Suspect]
     Active Substance: DEXAMETHASONE
     Indication: PLASMA CELL MYELOMA
     Route: 041
     Dates: start: 20151006, end: 20160312

REACTIONS (1)
  - Hepatitis B DNA increased [Recovered/Resolved]

NARRATIVE: CASE EVENT DATE: 20161116
